FAERS Safety Report 19685918 (Version 1)
Quarter: 2021Q3

REPORT INFORMATION
  Report Type: Other
  Country: CA (occurrence: CA)
  Receive Date: 20210811
  Receipt Date: 20210811
  Transmission Date: 20211014
  Serious: Yes (Other)
  Sender: FDA-Public Use
  Company Number: CA-APOTEX-2021AP028648

PATIENT
  Age: 53 Year
  Sex: Male

DRUGS (1)
  1. APO?DASATINIB [Suspect]
     Active Substance: DASATINIB
     Indication: CHRONIC MYELOID LEUKAEMIA
     Dosage: 70 MILLIGRAM, QD
     Route: 048

REACTIONS (5)
  - Eye discharge [Unknown]
  - Product substitution issue [Unknown]
  - Periorbital oedema [Unknown]
  - Ear swelling [Unknown]
  - Localised oedema [Unknown]
